FAERS Safety Report 17846951 (Version 1)
Quarter: 2020Q2

REPORT INFORMATION
  Report Type: Spontaneous
  Country: US (occurrence: US)
  Receive Date: 20200601
  Receipt Date: 20200601
  Transmission Date: 20200714
  Serious: No
  Sender: FDA-Public Use
  Company Number: US-ELI_LILLY_AND_COMPANY-US202005011073

PATIENT
  Sex: Female

DRUGS (2)
  1. TALTZ [Suspect]
     Active Substance: IXEKIZUMAB
     Indication: ANKYLOSING SPONDYLITIS
     Dosage: 80 MG, UNKNOWN
     Route: 065
  2. HUMIRA [Suspect]
     Active Substance: ADALIMUMAB
     Indication: ANKYLOSING SPONDYLITIS
     Dosage: UNK, UNKNOWN
     Route: 058

REACTIONS (11)
  - Meniscus injury [Unknown]
  - Anxiety [Unknown]
  - Feeling hot [Unknown]
  - Back pain [Unknown]
  - Paraesthesia [Unknown]
  - Lordosis [Unknown]
  - Anger [Unknown]
  - Pain [Unknown]
  - Liver function test increased [Recovering/Resolving]
  - Skin laceration [Unknown]
  - Burning sensation [Unknown]
